FAERS Safety Report 9630354 (Version 1)
Quarter: 2013Q4

REPORT INFORMATION
  Report Type: Report from Study
  Country: BR (occurrence: BR)
  Receive Date: 20131018
  Receipt Date: 20131018
  Transmission Date: 20140711
  Serious: Yes (Other)
  Sender: FDA-Public Use
  Company Number: BR-ROCHE-1290066

PATIENT
  Age: 58 Year
  Sex: Male

DRUGS (3)
  1. PEG-INTERFERON ALFA 2A [Suspect]
     Indication: HEPATITIS C
     Dosage: LASTED FOR 52 WEEKS
     Route: 065
     Dates: start: 20030326
  2. PEG-INTERFERON ALFA 2A [Suspect]
     Route: 065
     Dates: start: 20120808
  3. RIBAVIRIN [Suspect]
     Indication: HEPATITIS C
     Route: 065
     Dates: start: 20120808

REACTIONS (1)
  - Hepatitis C [Unknown]
